FAERS Safety Report 11056226 (Version 1)
Quarter: 2015Q2

REPORT INFORMATION
  Report Type: Spontaneous
  Country: GB (occurrence: GB)
  Receive Date: 20150422
  Receipt Date: 20150422
  Transmission Date: 20150821
  Serious: Yes (Death)
  Sender: FDA-Public Use
  Company Number: GB-ELI_LILLY_AND_COMPANY-GB201504005934

PATIENT
  Age: 72 Year
  Sex: Male

DRUGS (2)
  1. GEMCITABINE HYDROCHLORIDE. [Suspect]
     Active Substance: GEMCITABINE HYDROCHLORIDE
     Indication: BLADDER CANCER STAGE III
     Dosage: UNK
     Route: 042
  2. CARBOPLATIN. [Suspect]
     Active Substance: CARBOPLATIN
     Indication: BLADDER CANCER STAGE III
     Dosage: UNK UNK, UNKNOWN
     Route: 042

REACTIONS (4)
  - Acute kidney injury [Fatal]
  - Urosepsis [Fatal]
  - Hepatic function abnormal [Fatal]
  - Off label use [Unknown]

NARRATIVE: CASE EVENT DATE: 20150224
